APPROVED DRUG PRODUCT: TRIFLUOPERAZINE HYDROCHLORIDE
Active Ingredient: TRIFLUOPERAZINE HYDROCHLORIDE
Strength: EQ 1MG BASE
Dosage Form/Route: TABLET;ORAL
Application: A085975 | Product #001
Applicant: WATSON LABORATORIES INC
Approved: Jun 23, 1988 | RLD: No | RS: No | Type: DISCN